FAERS Safety Report 17195956 (Version 1)
Quarter: 2019Q4

REPORT INFORMATION
  Report Type: Report from Study
  Country: US (occurrence: US)
  Receive Date: 20191224
  Receipt Date: 20191224
  Transmission Date: 20200122
  Serious: Yes (Hospitalization, Other)
  Sender: FDA-Public Use
  Company Number: US-BRISTOL-MYERS SQUIBB COMPANY-BMS-2019-121652

PATIENT
  Age: 62 Year
  Sex: Female
  Weight: 57.9 kg

DRUGS (1)
  1. NIVOLUMAB [Suspect]
     Active Substance: NIVOLUMAB
     Indication: ANAL SQUAMOUS CELL CARCINOMA
     Dosage: 430 MILLIGRAM
     Route: 042
     Dates: start: 20191202

REACTIONS (4)
  - Chills [Recovering/Resolving]
  - Pyrexia [Recovering/Resolving]
  - Sinus tachycardia [Recovering/Resolving]
  - Troponin I increased [Recovering/Resolving]

NARRATIVE: CASE EVENT DATE: 20191209
